FAERS Safety Report 23285353 (Version 1)
Quarter: 2023Q4

REPORT INFORMATION
  Report Type: Spontaneous
  Country: ZA (occurrence: None)
  Receive Date: 20231211
  Receipt Date: 20231211
  Transmission Date: 20240109
  Serious: Yes (Other)
  Sender: FDA-Public Use
  Company Number: 2023A278136

PATIENT
  Age: 79 Year
  Sex: Female

DRUGS (6)
  1. BUDESONIDE\FORMOTEROL FUMARATE DIHYDRATE [Suspect]
     Active Substance: BUDESONIDE\FORMOTEROL FUMARATE DIHYDRATE
     Indication: Asthma
     Dosage: 160 UG/INHAL TWO TIMES A DAY
     Route: 055
  2. LASIX [Concomitant]
     Active Substance: FUROSEMIDE
     Indication: Hypertension
     Route: 048
  3. LEVOTHYROXINE [Concomitant]
     Active Substance: LEVOTHYROXINE
     Indication: Hypothyroidism
     Route: 048
  4. BISOPROLOL [Concomitant]
     Active Substance: BISOPROLOL\BISOPROLOL FUMARATE
     Route: 048
  5. CITALOPRAM HYDROBROMIDE [Concomitant]
     Active Substance: CITALOPRAM HYDROBROMIDE
     Indication: Depression
     Route: 048
  6. GLUCOPHAGE [Concomitant]
     Active Substance: METFORMIN HYDROCHLORIDE
     Indication: Diabetes mellitus
     Route: 048

REACTIONS (3)
  - Monoplegia [Unknown]
  - Peripheral swelling [Unknown]
  - Oropharyngeal discomfort [Unknown]
